FAERS Safety Report 7061098-8 (Version None)
Quarter: 2010Q4

REPORT INFORMATION
  Report Type: 
  Country: None (occurrence: None)
  Receive Date: 20101026
  Receipt Date: 20101021
  Transmission Date: 20110411
  Serious: Yes (Congenital Anomaly)
  Sender: FDA-Public Use
  Company Number: PFIZER INC-2007095392

PATIENT
  Sex: Female

DRUGS (1)
  1. ZOLOFT [Suspect]
     Indication: DEPRESSION
     Dosage: 50 MG, UNK
     Route: 064

REACTIONS (17)
  - ATRIAL SEPTAL DEFECT [None]
  - BLOOD MAGNESIUM INCREASED [None]
  - BLOOD PHOSPHORUS DECREASED [None]
  - BUNDLE BRANCH BLOCK RIGHT [None]
  - CARDIAC FAILURE CONGESTIVE [None]
  - DRUG EXPOSURE DURING PREGNANCY [None]
  - LYMPHOCYTE PERCENTAGE DECREASED [None]
  - MATERNAL DRUGS AFFECTING FOETUS [None]
  - MONOCYTE PERCENTAGE DECREASED [None]
  - NEUTROPHIL PERCENTAGE INCREASED [None]
  - PATENT DUCTUS ARTERIOSUS [None]
  - PULMONARY CONGESTION [None]
  - PULMONARY HYPERTENSION [None]
  - RASH NEONATAL [None]
  - RED BLOOD CELL COUNT INCREASED [None]
  - SNORING [None]
  - VENTRICULAR SEPTAL DEFECT [None]
